FAERS Safety Report 7501322-8 (Version None)
Quarter: 2011Q2

REPORT INFORMATION
  Report Type: 
  Country: None (occurrence: None)
  Receive Date: 20110524
  Receipt Date: 20110519
  Transmission Date: 20111010
  Serious: Yes (Hospitalization)
  Sender: FDA-Public Use
  Company Number: JP-ABBOTT-11P-087-0721842-00

PATIENT
  Sex: Male
  Weight: 37 kg

DRUGS (5)
  1. AMPICILLIN SODIUM/SULBACTAM SODIUM [Suspect]
     Indication: PNEUMONIA
     Dates: start: 20110415, end: 20110418
  2. MEDICON [Concomitant]
     Indication: PNEUMONIA
     Dosage: 45 MG (15 MG, TID)
     Route: 048
     Dates: start: 20110415, end: 20110418
  3. MUCOSOLVAN [Concomitant]
     Indication: PNEUMONIA
     Dosage: 45 MG (15 MG, TID)
     Route: 048
     Dates: start: 20110415, end: 20110418
  4. CLARITHROMYCIN [Suspect]
     Indication: PNEUMONIA
     Route: 048
     Dates: start: 20110415, end: 20110418
  5. CALONAL [Concomitant]
     Indication: PNEUMONIA
     Dosage: 40MG, PRN
     Route: 048
     Dates: start: 20110415, end: 20110418

REACTIONS (2)
  - ERYTHEMA [None]
  - HEPATIC FUNCTION ABNORMAL [None]
